FAERS Safety Report 7768073-6 (Version None)
Quarter: 2011Q3

REPORT INFORMATION
  Report Type: 
  Country: None (occurrence: None)
  Receive Date: 20110922
  Receipt Date: 20110920
  Transmission Date: 20111222
  Serious: Yes (Congenital Anomaly, Other)
  Sender: FDA-Public Use
  Company Number: US-PFIZER INC-2011077315

PATIENT
  Sex: Female
  Weight: 3.655 kg

DRUGS (6)
  1. TYLENOL-500 [Concomitant]
     Indication: COUGH
     Route: 064
  2. PRENATAL VITAMINS [Concomitant]
     Dosage: UNK
     Route: 064
  3. ZOLOFT [Suspect]
     Indication: DEPRESSION
     Route: 064
  4. ZOLOFT [Suspect]
     Indication: ANXIETY
  5. SERTRALINE HYDROCHLORIDE [Suspect]
     Dosage: 100 MG, UNK
     Route: 064
     Dates: start: 20100101
  6. ACETYLSALICYLIC ACID [Concomitant]
     Dosage: 81 MG, 1X/DAY
     Route: 064

REACTIONS (3)
  - FOOT DEFORMITY [None]
  - TALIPES [None]
  - MATERNAL EXPOSURE DURING PREGNANCY [None]
